FAERS Safety Report 26017526 (Version 1)
Quarter: 2025Q4

REPORT INFORMATION
  Report Type: Spontaneous
  Country: EU (occurrence: EU)
  Receive Date: 20251110
  Receipt Date: 20251110
  Transmission Date: 20260117
  Serious: Yes (Death, Other)
  Sender: AUROBINDO
  Company Number: EU-EMA-DD-20211209-singh_p11-152127

PATIENT
  Age: 36 Year
  Sex: Male
  Weight: 102 kg

DRUGS (3)
  1. PREGABALIN [Interacting]
     Active Substance: PREGABALIN
     Indication: Anxiety disorder
     Dosage: UNK
     Route: 065
  2. TEMAZEPAM [Interacting]
     Active Substance: TEMAZEPAM
     Indication: Product used for unknown indication
     Dosage: UNK
     Route: 065
  3. ALPRAZOLAM [Interacting]
     Active Substance: ALPRAZOLAM
     Indication: Product used for unknown indication
     Dosage: UNK
     Route: 065

REACTIONS (5)
  - Depressed level of consciousness [Fatal]
  - Drug interaction [Fatal]
  - Conjunctival haemorrhage [Unknown]
  - Hepatosplenomegaly [Unknown]
  - Visceral congestion [Unknown]
